FAERS Safety Report 6677485-3 (Version None)
Quarter: 2010Q2

REPORT INFORMATION
  Report Type: 
  Country: None (occurrence: None)
  Receive Date: 20100412
  Receipt Date: 20100401
  Transmission Date: 20101027
  Serious: Yes (Other)
  Sender: FDA-Public Use
  Company Number: B0643246A

PATIENT
  Age: 40 Year
  Sex: Male

DRUGS (1)
  1. AMOXICILLIN [Suspect]
     Route: 048

REACTIONS (8)
  - BLISTER [None]
  - ERYTHEMA [None]
  - NIKOLSKY'S SIGN [None]
  - PEMPHIGUS [None]
  - PRURITUS [None]
  - SCAB [None]
  - SKIN LESION [None]
  - URTICARIA [None]
